FAERS Safety Report 5262373-X (Version None)
Quarter: 2007Q1

REPORT INFORMATION
  Report Type: 
  Country: None (occurrence: None)
  Receive Date: 20070308
  Receipt Date: 20070221
  Transmission Date: 20070707
  Serious: Yes (Death, Other)
  Sender: FDA-Public Use
  Company Number: 15765

PATIENT
  Age: 25 Year
  Sex: Male

DRUGS (14)
  1. METHOTREXATE [Suspect]
     Indication: NON-HODGKIN'S LYMPHOMA
  2. METHOTREXATE [Suspect]
     Indication: NON-HODGKIN'S LYMPHOMA
     Dosage: 12 MG IT
  3. METHOTREXATE [Suspect]
     Indication: NON-HODGKIN'S LYMPHOMA
     Dosage: 12 MG IT
  4. CYTARABINE [Suspect]
     Indication: NON-HODGKIN'S LYMPHOMA
  5. CYTARABINE [Suspect]
     Indication: NON-HODGKIN'S LYMPHOMA
     Dosage: 100 MG IT
  6. CYTARABINE [Suspect]
     Indication: NON-HODGKIN'S LYMPHOMA
  7. CYTARABINE [Suspect]
     Indication: NON-HODGKIN'S LYMPHOMA
     Dosage: 100 MG IT
  8. CYCLOPHOSPHAMIDE [Concomitant]
  9. VINCRISTINE [Concomitant]
  10. DOXORUBICIN HCL [Concomitant]
  11. DEXAMETHASONE [Concomitant]
  12. RADIOTHERAPY [Concomitant]
  13. IDARUBICIN HCL [Concomitant]
  14. FLUDARABINE [Concomitant]

REACTIONS (6)
  - BK VIRUS INFECTION [None]
  - CEREBRAL HAEMORRHAGE [None]
  - CEREBRAL INFARCTION [None]
  - HAEMATURIA [None]
  - MYELOPATHY [None]
  - SEPSIS [None]
